FAERS Safety Report 7315589-2 (Version None)
Quarter: 2011Q1

REPORT INFORMATION
  Report Type: 
  Country: None (occurrence: None)
  Receive Date: 20110225
  Receipt Date: 20110215
  Transmission Date: 20110831
  Serious: Yes (Hospitalization)
  Sender: FDA-Public Use
  Company Number: TW-ALLERGAN-1102264US

PATIENT
  Age: 70 Year
  Sex: Female
  Weight: 70 kg

DRUGS (10)
  1. DEX 0.7MG INS (9632X) [Suspect]
     Dosage: UNK
     Route: 031
     Dates: start: 20100202, end: 20100202
  2. ANXOTOS [Concomitant]
     Indication: DIABETES MELLITUS
     Dosage: 30 MG, QD
     Route: 048
     Dates: start: 20050101
  3. DEX 0.7MG INS (9632X) [Suspect]
     Dosage: UNK
     Route: 031
     Dates: start: 20090818, end: 20090818
  4. AMARYL [Concomitant]
     Indication: DIABETES MELLITUS
     Dosage: 2 MG, UNK
     Route: 048
     Dates: start: 20090915
  5. GLUCOPHAGE [Concomitant]
     Indication: DIABETES MELLITUS
     Dosage: 500 MG, BID
     Route: 048
     Dates: start: 20090915
  6. DEX 0.7MG INS (9632X) [Suspect]
     Indication: DIABETIC RETINAL OEDEMA
     Dosage: UNK
     Route: 031
     Dates: start: 20080826, end: 20080826
  7. NORVASC [Concomitant]
     Indication: HYPERTENSION
     Dosage: 5 MG, QD
     Route: 048
     Dates: start: 20090331
  8. DEX 0.7MG INS (9632X) [Suspect]
     Dosage: UNK
     Route: 031
     Dates: start: 20100810, end: 20100810
  9. DEX 0.7MG INS (9632X) [Suspect]
     Dosage: UNK
     Route: 031
     Dates: start: 20090303, end: 20090303
  10. CO-APROVEL [Concomitant]
     Indication: HYPERTENSION
     Dosage: 1 DF, QD
     Route: 048
     Dates: start: 20090331

REACTIONS (1)
  - MACULAR OEDEMA [None]
